FAERS Safety Report 8129359-9 (Version None)
Quarter: 2012Q1

REPORT INFORMATION
  Report Type: 
  Country: None (occurrence: None)
  Receive Date: 20120210
  Receipt Date: 20120207
  Transmission Date: 20120608
  Serious: Yes (Other)
  Sender: FDA-Public Use
  Company Number: GB-MERCK-1201GBR00070

PATIENT
  Age: 67 Year
  Sex: Female

DRUGS (7)
  1. RAMIPRIL [Suspect]
     Indication: MYOCARDIAL INFARCTION
     Route: 065
  2. ASPIRIN [Suspect]
     Indication: MYOCARDIAL INFARCTION
     Route: 065
  3. CLOPIDOGREL [Suspect]
     Indication: MYOCARDIAL INFARCTION
     Route: 065
  4. ZOCOR [Suspect]
     Indication: MYOCARDIAL INFARCTION
     Route: 048
  5. CLOPIDOGREL BISULFATE [Suspect]
     Indication: MYOCARDIAL INFARCTION
     Route: 065
  6. PREGABALIN [Suspect]
     Indication: TRIGEMINAL NEURALGIA
     Route: 065
     Dates: start: 20060101
  7. BISOPROLOL FUMARATE [Suspect]
     Indication: MYOCARDIAL INFARCTION
     Route: 065

REACTIONS (3)
  - MYOCARDIAL INFARCTION [None]
  - DRUG INTERACTION [None]
  - DRUG INEFFECTIVE [None]
